FAERS Safety Report 5720531-1 (Version None)
Quarter: 2008Q2

REPORT INFORMATION
  Report Type: 
  Country: None (occurrence: None)
  Receive Date: 20080428
  Receipt Date: 20080225
  Transmission Date: 20081010
  Serious: Yes (Hospitalization)
  Sender: FDA-Public Use
  Company Number: ZA-PFIZER INC-2008019548

PATIENT
  Sex: Female

DRUGS (2)
  1. PROSTIN E2 [Suspect]
     Indication: CERVIX DISORDER
     Dates: start: 20010101, end: 20010101
  2. SYNTOCINON [Concomitant]

REACTIONS (3)
  - POSTPARTUM HAEMORRHAGE [None]
  - UTERINE ATONY [None]
  - UTERINE HYPERTONUS [None]
